FAERS Safety Report 17386399 (Version 1)
Quarter: 2020Q1

REPORT INFORMATION
  Report Type: Spontaneous
  Country: DZ (occurrence: DZ)
  Receive Date: 20200206
  Receipt Date: 20200206
  Transmission Date: 20200409
  Serious: Yes (Other)
  Sender: FDA-Public Use
  Company Number: DZ-PFIZER INC-2020051435

PATIENT
  Age: 67 Year
  Sex: Female

DRUGS (2)
  1. AMLOR [Suspect]
     Active Substance: AMLODIPINE BESYLATE
     Indication: LABILE HYPERTENSION
     Dosage: 5 MG, ONE CAPSULE DAILY SINCE 3 YEARS
     Route: 048
  2. METEOSPASMYL [ALVERINE CITRATE;DL-METHIONINE] [Concomitant]
     Active Substance: ALVERINE CITRATE\RACEMETHIONINE
     Indication: GASTROINTESTINAL DISORDER

REACTIONS (3)
  - Hyperhidrosis [Unknown]
  - Tachycardia [Unknown]
  - Dyspnoea at rest [Unknown]

NARRATIVE: CASE EVENT DATE: 201912
